FAERS Safety Report 11889307 (Version 1)
Quarter: 2016Q1

REPORT INFORMATION
  Report Type: Spontaneous
  Country: US (occurrence: None)
  Receive Date: 20160104
  Receipt Date: 20160104
  Transmission Date: 20160526
  Serious: No
  Sender: FDA-Public Use
  Company Number: None

PATIENT
  Age: 58 Year
  Sex: Female
  Weight: 81.65 kg

DRUGS (1)
  1. LUMIGAN [Suspect]
     Active Substance: BIMATOPROST
     Indication: MADAROSIS
     Dosage: YES. SAMPLE?AT BEDTIME?INTO THE EYE
     Route: 047

REACTIONS (1)
  - Ocular hyperaemia [None]

NARRATIVE: CASE EVENT DATE: 20151228
